FAERS Safety Report 8741652 (Version 2)
Quarter: 2012Q4

REPORT INFORMATION
  Report Type: 
  Country: GB (occurrence: GB)
  Receive Date: 20120824
  Receipt Date: 20120928
  Transmission Date: 20130627
  Serious: Yes (Hospitalization, Other)
  Sender: FDA-Public Use
  Company Number: GB-AMGEN-GBRSP2012051459

PATIENT
  Age: 89 Year
  Sex: Female

DRUGS (1)
  1. ENBREL [Suspect]
     Indication: RHEUMATOID ARTHRITIS
     Dosage: 50 mg, UNK
     Dates: start: 20120809

REACTIONS (2)
  - Deep vein thrombosis [Recovering/Resolving]
  - Cellulitis [Recovering/Resolving]
